FAERS Safety Report 17484788 (Version 3)
Quarter: 2020Q1

REPORT INFORMATION
  Report Type: Spontaneous
  Country: DE (occurrence: DE)
  Receive Date: 20200302
  Receipt Date: 20200324
  Transmission Date: 20200409
  Serious: Yes (Other)
  Sender: FDA-Public Use
  Company Number: DE-ALLERGAN-2009245US

PATIENT
  Sex: Female

DRUGS (1)
  1. CARIPRAZINE HCL - BP [Suspect]
     Active Substance: CARIPRAZINE HYDROCHLORIDE
     Indication: SCHIZOPHRENIA
     Dosage: 3 MG, QD
     Route: 048
     Dates: start: 20190828, end: 20200219

REACTIONS (24)
  - Noninfective gingivitis [Unknown]
  - Thirst [Unknown]
  - Nightmare [Unknown]
  - Posture abnormal [Unknown]
  - Somnolence [Unknown]
  - Loose tooth [Not Recovered/Not Resolved]
  - Weight decreased [Not Recovered/Not Resolved]
  - Drug dose titration not performed [Unknown]
  - Abdominal pain upper [Unknown]
  - Dyspepsia [Unknown]
  - Musculoskeletal stiffness [Unknown]
  - Vision blurred [Unknown]
  - Dislocation of vertebra [Unknown]
  - Vertigo [Unknown]
  - Restlessness [Unknown]
  - Insomnia [Unknown]
  - Pruritus [Unknown]
  - Chest pain [Unknown]
  - Cough [Unknown]
  - Myalgia [Unknown]
  - Muscular weakness [Unknown]
  - Libido decreased [Unknown]
  - Decreased appetite [Unknown]
  - Nausea [Unknown]

NARRATIVE: CASE EVENT DATE: 20190828
